FAERS Safety Report 7637020-X (Version None)
Quarter: 2011Q3

REPORT INFORMATION
  Report Type: 
  Country: None (occurrence: None)
  Receive Date: 20110726
  Receipt Date: 20110720
  Transmission Date: 20111222
  Serious: Yes (Hospitalization, Other)
  Sender: FDA-Public Use
  Company Number: FR-PFIZER INC-2011164578

PATIENT
  Age: 82 Year
  Sex: Female

DRUGS (7)
  1. METOPROLOL TARTRATE [Interacting]
     Dosage: 200 MG, 1X/DAY
     Route: 048
  2. SERETIDE DISKUS [Concomitant]
     Indication: ASTHMA
     Dosage: 1 DF, 2X/DAY
     Route: 048
  3. ASPIRIN [Concomitant]
     Dosage: 75 MG, 1X/DAY
     Route: 048
  4. DOMPERIDONE [Concomitant]
     Dosage: 10 MG, 3X/DAY
     Route: 048
  5. ALDACTONE [Interacting]
     Dosage: 50 MG, 1X/DAY
     Route: 048
  6. XANAX [Suspect]
     Dosage: 0.25 MG, 2X/DAY
     Route: 048
  7. ATORVASTATIN CALCIUM [Concomitant]
     Indication: DYSLIPIDAEMIA
     Dosage: 10 MG, 1X/DAY
     Route: 048

REACTIONS (6)
  - FALL [None]
  - PAIN [None]
  - DRUG INTERACTION [None]
  - JOINT STABILISATION [None]
  - HUMERUS FRACTURE [None]
  - MALAISE [None]
